FAERS Safety Report 15629305 (Version 1)
Quarter: 2018Q4

REPORT INFORMATION
  Report Type: Spontaneous
  Country: IT (occurrence: IT)
  Receive Date: 20181117
  Receipt Date: 20181117
  Transmission Date: 20190205
  Serious: Yes (Death, Other)
  Sender: FDA-Public Use
  Company Number: IT-TEVA-2018-IT-977254

PATIENT
  Age: 56 Year
  Sex: Male

DRUGS (21)
  1. DOXORUBICIN [Suspect]
     Active Substance: DOXORUBICIN
     Indication: PLASMA CELL MYELOMA
     Dosage: 4 CYCLES
     Route: 065
     Dates: start: 20100115, end: 20100406
  2. MELPHALAN. [Suspect]
     Active Substance: MELPHALAN
     Dosage: 1 CYCLE
     Route: 065
     Dates: start: 20140625
  3. PREDNISONE. [Suspect]
     Active Substance: PREDNISONE
     Dosage: 1 CYCLE
     Route: 065
     Dates: start: 20140625
  4. BENDAMUSTINE [Suspect]
     Active Substance: BENDAMUSTINE
     Indication: PLASMA CELL MYELOMA
     Dosage: 5 CYCLES
     Route: 065
     Dates: start: 20140115, end: 20140520
  5. DEXAMETHAZON [Suspect]
     Active Substance: DEXAMETHASONE
     Dosage: 4 CYCLES
     Route: 065
     Dates: start: 20100406, end: 20100615
  6. ETOPOSIDE. [Suspect]
     Active Substance: ETOPOSIDE
     Indication: PLASMA CELL MYELOMA
     Dosage: 2 CYCLES
     Route: 065
     Dates: start: 20100616, end: 20100803
  7. DEXAMETHAZON [Suspect]
     Active Substance: DEXAMETHASONE
     Dosage: 2 CYCLES
     Route: 065
     Dates: start: 20100616, end: 20100803
  8. LENALIDOMIDE [Suspect]
     Active Substance: LENALIDOMIDE
     Indication: PLASMA CELL MYELOMA
     Dosage: FOUR CYCLES
     Route: 065
     Dates: start: 20080701, end: 20080923
  9. CYCLOPHOSPHAMIDE. [Suspect]
     Active Substance: CYCLOPHOSPHAMIDE
     Indication: PLASMA CELL MYELOMA
     Dosage: SINGLE CYCLE
     Route: 065
     Dates: start: 20081121
  10. DEXAMETHAZON [Suspect]
     Active Substance: DEXAMETHASONE
     Indication: PLASMA CELL MYELOMA
     Dosage: 4 CYCLES
     Route: 065
     Dates: start: 20080701, end: 20080923
  11. DOXORUBICIN [Suspect]
     Active Substance: DOXORUBICIN
     Dosage: 2 CYCLES
     Route: 065
     Dates: start: 20100616, end: 20100803
  12. LENALIDOMIDE [Suspect]
     Active Substance: LENALIDOMIDE
     Dosage: SIX CYCLES
     Route: 065
     Dates: start: 20090115, end: 20090604
  13. CYCLOPHOSPHAMIDE. [Suspect]
     Active Substance: CYCLOPHOSPHAMIDE
     Dosage: 2 CYCLES
     Route: 065
     Dates: start: 20100616, end: 20100803
  14. DEXAMETHAZON [Suspect]
     Active Substance: DEXAMETHASONE
     Dosage: 7 CYCLES
     Route: 065
     Dates: start: 20160225
  15. PREDNISONE. [Suspect]
     Active Substance: PREDNISONE
     Indication: PLASMA CELL MYELOMA
     Dosage: SIX CYCLES
     Route: 065
     Dates: start: 20090115, end: 20090604
  16. BORTEZOMIB. [Suspect]
     Active Substance: BORTEZOMIB
     Dosage: 4 CYCLES
     Route: 065
     Dates: start: 20100115, end: 20100406
  17. MELPHALAN. [Suspect]
     Active Substance: MELPHALAN
     Indication: PLASMA CELL MYELOMA
     Dosage: SIX CYCLES
     Route: 065
     Dates: start: 20090115, end: 20090604
  18. BORTEZOMIB. [Suspect]
     Active Substance: BORTEZOMIB
     Indication: PLASMA CELL MYELOMA
     Dosage: THREE CYCLES
     Route: 065
     Dates: start: 20091030, end: 20091211
  19. DEXAMETHAZON [Suspect]
     Active Substance: DEXAMETHASONE
     Dosage: 3 CYCLE
     Route: 065
     Dates: start: 20091030, end: 20091211
  20. LAMIVUDINE. [Suspect]
     Active Substance: LAMIVUDINE
     Indication: PROPHYLAXIS
     Route: 065
  21. BORTEZOMIB. [Suspect]
     Active Substance: BORTEZOMIB
     Dosage: 2 CYCLES
     Route: 065
     Dates: start: 20100616, end: 20100803

REACTIONS (2)
  - Drug resistance [Unknown]
  - Hepatitis B reactivation [Not Recovered/Not Resolved]
